FAERS Safety Report 13061953 (Version 1)
Quarter: 2016Q4

REPORT INFORMATION
  Report Type: Report from Study
  Country: US (occurrence: US)
  Receive Date: 20161226
  Receipt Date: 20161226
  Transmission Date: 20170207
  Serious: Yes (Other)
  Sender: FDA-Public Use
  Company Number: US-ROCHE-1856070

PATIENT
  Age: 56 Year
  Sex: Female
  Weight: 47.67 kg

DRUGS (3)
  1. ERIVEDGE [Suspect]
     Active Substance: VISMODEGIB
     Indication: BASAL CELL CARCINOMA
     Route: 065
     Dates: start: 2016, end: 20161025
  2. ERIVEDGE [Suspect]
     Active Substance: VISMODEGIB
     Route: 048
     Dates: start: 20160308, end: 20161025
  3. ERIVEDGE [Suspect]
     Active Substance: VISMODEGIB
     Route: 048
     Dates: start: 2016, end: 2016

REACTIONS (3)
  - Alopecia [Unknown]
  - Colon cancer [Recovered/Resolved]
  - Madarosis [Unknown]

NARRATIVE: CASE EVENT DATE: 201607
